FAERS Safety Report 23993410 (Version 1)
Quarter: 2024Q2

REPORT INFORMATION
  Report Type: Spontaneous
  Country: US (occurrence: US)
  Receive Date: 20240620
  Receipt Date: 20240620
  Transmission Date: 20240715
  Serious: Yes (Other)
  Sender: FDA-Public Use
  Company Number: US-MYLANLABS-2024M1053999

PATIENT
  Age: 34 Year
  Sex: Male

DRUGS (3)
  1. TRIAMCINOLONE [Interacting]
     Active Substance: TRIAMCINOLONE
     Indication: Product used for unknown indication
     Dosage: RECEIVED A TOTAL OF 9 INJECTIONS
     Route: 008
  2. COBICISTAT [Interacting]
     Active Substance: COBICISTAT
     Indication: HIV infection
     Dosage: UNK
     Route: 065
  3. METHYLPREDNISOLONE [Suspect]
     Active Substance: METHYLPREDNISOLONE
     Indication: Product used for unknown indication
     Dosage: 4 MILLIGRAM
     Route: 065

REACTIONS (3)
  - Cushing^s syndrome [Unknown]
  - Labelled drug-drug interaction medication error [Unknown]
  - Off label use [Unknown]
